FAERS Safety Report 10930884 (Version 2)
Quarter: 2015Q2

REPORT INFORMATION
  Report Type: Report from Study
  Country: ES (occurrence: ES)
  Receive Date: 20150319
  Receipt Date: 20150424
  Transmission Date: 20150821
  Serious: Yes (Death, Hospitalization)
  Sender: FDA-Public Use
  Company Number: ES-CELGENE-ESP-2015032383

PATIENT
  Age: 74 Year
  Sex: Male
  Weight: 89 kg

DRUGS (15)
  1. GEMCITABINE [Suspect]
     Active Substance: GEMCITABINE\GEMCITABINE HYDROCHLORIDE
     Dosage: 2020 MG
     Route: 041
  2. METFORMIN [Concomitant]
     Active Substance: METFORMIN HYDROCHLORIDE
     Indication: DIABETES MELLITUS
     Route: 048
  3. ABRAXANE [Suspect]
     Active Substance: PACLITAXEL
     Indication: PANCREATIC CARCINOMA METASTATIC
     Dosage: 253 MG
     Route: 041
     Dates: start: 20150218, end: 20150221
  4. GLIMEPIRIDA [Concomitant]
     Active Substance: GLIMEPIRIDE
     Indication: DIABETES MELLITUS
     Route: 048
  5. NOLOTIL [Concomitant]
     Active Substance: METAMIZOLE
     Indication: PAIN
     Dosage: 20 MILLIGRAM
     Route: 048
  6. OMEPRAZOLE. [Concomitant]
     Active Substance: OMEPRAZOLE
     Indication: PAIN PROPHYLAXIS
     Dosage: 4 MILLIGRAM
     Route: 048
  7. GRANISETRON [Concomitant]
     Active Substance: GRANISETRON
     Indication: PAIN PROPHYLAXIS
     Dosage: 150 MILLIGRAM
     Route: 048
  8. METOCLOPRAMIDE. [Concomitant]
     Active Substance: METOCLOPRAMIDE
     Indication: PROPHYLAXIS OF NAUSEA AND VOMITING
     Dosage: 4 MILLIGRAM
     Route: 048
  9. ENALAPRIL [Concomitant]
     Active Substance: ENALAPRIL
     Indication: HYPERTENSION
     Route: 048
  10. LORAZEPAM. [Concomitant]
     Active Substance: LORAZEPAM
     Indication: INSOMNIA
     Route: 048
  11. MYCOSTATIN [Concomitant]
     Active Substance: NYSTATIN
     Indication: MOUTH ULCERATION
     Dosage: 2550 MILLIGRAM
     Route: 048
  12. ABRAXANE [Suspect]
     Active Substance: PACLITAXEL
     Dosage: 253 MG
     Route: 041
  13. GEMCITABINE [Suspect]
     Active Substance: GEMCITABINE\GEMCITABINE HYDROCHLORIDE
     Indication: PANCREATIC CARCINOMA METASTATIC
     Dosage: 2020 MG
     Route: 041
     Dates: start: 20150218, end: 20150221
  14. RILAST [Concomitant]
     Active Substance: BUDESONIDE\FORMOTEROL
     Indication: CHRONIC OBSTRUCTIVE PULMONARY DISEASE
     Route: 048
  15. PREGABALINA [Concomitant]
     Active Substance: PREGABALIN
     Indication: PRODUCT USED FOR UNKNOWN INDICATION
     Route: 048

REACTIONS (2)
  - Cardio-respiratory arrest [Fatal]
  - Cholangitis [Recovered/Resolved]

NARRATIVE: CASE EVENT DATE: 20150221
